FAERS Safety Report 5469525-4 (Version None)
Quarter: 2007Q3

REPORT INFORMATION
  Report Type: 
  Country: None (occurrence: None)
  Receive Date: 20070927
  Receipt Date: 20070730
  Transmission Date: 20080115
  Serious: Yes (Death)
  Sender: FDA-Public Use
  Company Number: B0479100A

PATIENT

DRUGS (1)
  1. AUGMENTIN '125' [Suspect]
     Indication: URINARY TRACT INFECTION
     Route: 058
     Dates: start: 20070710, end: 20070712

REACTIONS (4)
  - DEATH [None]
  - DRUG INEFFECTIVE [None]
  - INCORRECT ROUTE OF DRUG ADMINISTRATION [None]
  - NO ADVERSE DRUG REACTION [None]
